FAERS Safety Report 9153516 (Version 1)
Quarter: 2013Q1

REPORT INFORMATION
  Report Type: Spontaneous
  Country: US (occurrence: None)
  Receive Date: 20130222
  Receipt Date: 20130222
  Transmission Date: 20140127
  Serious: Yes (Hospitalization)
  Sender: FDA-Public Use
  Company Number: DKLU1088976

PATIENT
  Age: 2 Year
  Sex: Female

DRUGS (3)
  1. SABRIL (FOR ORAL SOLUTION) (SABRIL) (VIGABATRIN) (POWDER FOR ORAL SOLUTION) [Suspect]
     Indication: INFANTILE SPASMS
     Route: 048
     Dates: start: 201202, end: 201212
  2. KLONOPIN (CLONAZEPAM) (TABLETS) [Concomitant]
  3. ZONEGRAN (ZONISAMIDE) [Concomitant]

REACTIONS (1)
  - Chorea [None]
